FAERS Safety Report 25958225 (Version 1)
Quarter: 2025Q4

REPORT INFORMATION
  Report Type: Spontaneous
  Country: US (occurrence: US)
  Receive Date: 20251024
  Receipt Date: 20251024
  Transmission Date: 20260118
  Serious: No
  Sender: MYLAN
  Company Number: US-MYLANLABS-2025M1088189

PATIENT
  Sex: Female
  Weight: 56.7 kg

DRUGS (2)
  1. XANAX [Suspect]
     Active Substance: ALPRAZOLAM
     Indication: Anxiety
     Dosage: UNK, QD (ONCE DAILY, TAKES IT WHEN SHE NEEDS IT)
  2. GINKGO [Concomitant]
     Active Substance: GINKGO
     Dosage: UNK

REACTIONS (4)
  - Tinnitus [Unknown]
  - Circumstance or information capable of leading to medication error [Unknown]
  - Product physical issue [Unknown]
  - Product colour issue [Unknown]
